FAERS Safety Report 13061441 (Version 1)
Quarter: 2016Q4

REPORT INFORMATION
  Report Type: Spontaneous
  Country: US (occurrence: US)
  Receive Date: 20161226
  Receipt Date: 20161226
  Transmission Date: 20170207
  Serious: No
  Sender: FDA-Public Use
  Company Number: ALCN2016US009139

PATIENT
  Sex: Female

DRUGS (3)
  1. ATROPINE SULFATE. [Suspect]
     Active Substance: ATROPINE SULFATE
     Indication: PREOPERATIVE CARE
     Route: 047
  2. NEO-SYNEPHRINE [Suspect]
     Active Substance: PHENYLEPHRINE HYDROCHLORIDE
     Indication: PREOPERATIVE CARE
     Route: 047
  3. TROPICAMIDE. [Suspect]
     Active Substance: TROPICAMIDE
     Indication: PREOPERATIVE CARE
     Route: 047

REACTIONS (1)
  - Miosis [Unknown]

NARRATIVE: CASE EVENT DATE: 20161213
